FAERS Safety Report 24328598 (Version 2)
Quarter: 2024Q4

REPORT INFORMATION
  Report Type: Spontaneous
  Country: US (occurrence: US)
  Receive Date: 20240917
  Receipt Date: 20241016
  Transmission Date: 20250114
  Serious: Yes (Hospitalization)
  Sender: ALKERMES
  Company Number: US-ALKERMES INC.-ALK-2024-002328

PATIENT
  Sex: Female
  Weight: 92.517 kg

DRUGS (5)
  1. VIVITROL [Suspect]
     Active Substance: NALTREXONE
     Indication: Substance dependence
     Dosage: 380 MILLIGRAM, QMO
     Route: 030
     Dates: start: 20240807, end: 20240807
  2. BUSPAR [Concomitant]
     Active Substance: BUSPIRONE HYDROCHLORIDE
     Indication: Anxiety
     Dosage: 10 MILLIGRAM, BID
     Route: 048
     Dates: start: 20240801
  3. TOPAMAX [Concomitant]
     Active Substance: TOPIRAMATE
     Indication: Bipolar disorder
     Dosage: 25 MILLIGRAM, BID
     Route: 048
     Dates: start: 20240801
  4. TOPAMAX [Concomitant]
     Active Substance: TOPIRAMATE
     Dosage: 50 MILLIGRAM, BID
     Route: 048
     Dates: start: 20240809
  5. ATORVASTATIN [Concomitant]
     Active Substance: ATORVASTATIN
     Indication: Hypercholesterolaemia
     Dosage: 40 MILLIGRAM, QHS
     Route: 048

REACTIONS (5)
  - Anxiety [Unknown]
  - Mood swings [Unknown]
  - Drug effect less than expected [Recovering/Resolving]
  - Anger [Unknown]
  - Off label use [Unknown]

NARRATIVE: CASE EVENT DATE: 20240101
